FAERS Safety Report 9303819 (Version 3)
Quarter: 2014Q2

REPORT INFORMATION
  Report Type: Spontaneous
  Country: IE (occurrence: IE)
  Receive Date: 20130522
  Receipt Date: 20140428
  Transmission Date: 20141212
  Serious: Yes (Death)
  Sender: FDA-Public Use
  Company Number: IE-GLAXOSMITHKLINE-B0892956A

PATIENT
  Age: 54 Year
  Sex: Male

DRUGS (3)
  1. AVANDIA [Suspect]
     Indication: PRODUCT USED FOR UNKNOWN INDICATION
     Dosage: 4MG PER DAY
     Route: 065
     Dates: start: 20031119
  2. GLICLAZIDE [Concomitant]
     Dosage: 160MG TWICE PER DAY
  3. METFORMIN [Concomitant]
     Dosage: 500MG THREE TIMES PER DAY

REACTIONS (1)
  - Cardiac arrest [Fatal]
